FAERS Safety Report 8483566-4 (Version None)
Quarter: 2012Q3

REPORT INFORMATION
  Report Type: 
  Country: None (occurrence: None)
  Receive Date: 20120702
  Receipt Date: 20120626
  Transmission Date: 20120928
  Serious: Yes (Other)
  Sender: FDA-Public Use
  Company Number: JP-MERCK-1206USA01725

PATIENT
  Age: 67 Year
  Sex: Female

DRUGS (3)
  1. FOSAPREPITANT DIMEGLUMINE [Suspect]
     Indication: PROPHYLAXIS OF NAUSEA AND VOMITING
     Route: 041
  2. CYCLOPHOSPHAMIDE [Concomitant]
     Indication: BREAST CANCER
     Route: 065
  3. EPIRUBICIN HYDROCHLORIDE [Suspect]
     Indication: BREAST CANCER
     Route: 065

REACTIONS (5)
  - INJECTION SITE VASCULITIS [None]
  - INJECTION SITE PAIN [None]
  - WHITE BLOOD CELL COUNT DECREASED [None]
  - INJECTION SITE CELLULITIS [None]
  - INJECTION SITE INFECTION [None]
